FAERS Safety Report 17658106 (Version 1)
Quarter: 2020Q2

REPORT INFORMATION
  Report Type: Spontaneous
  Country: MX (occurrence: MX)
  Receive Date: 20200411
  Receipt Date: 20200411
  Transmission Date: 20200713
  Serious: Yes (Death, Other)
  Sender: FDA-Public Use
  Company Number: NVSC2020MX097874

PATIENT
  Sex: Female

DRUGS (2)
  1. CO-DIOVAN [Suspect]
     Active Substance: HYDROCHLOROTHIAZIDE\VALSARTAN
     Indication: HYPERTENSION
     Dosage: 1 DF, QD
     Route: 048
  2. DIOVAN [Suspect]
     Active Substance: VALSARTAN
     Indication: HYPERTENSION
     Dosage: 80 MG, BID
     Route: 048
     Dates: start: 2007

REACTIONS (3)
  - Diabetes mellitus [Not Recovered/Not Resolved]
  - Inappropriate schedule of product administration [Unknown]
  - Chronic obstructive pulmonary disease [Fatal]

NARRATIVE: CASE EVENT DATE: 2010
